FAERS Safety Report 19210952 (Version 2)
Quarter: 2021Q2

REPORT INFORMATION
  Report Type: Spontaneous
  Country: US (occurrence: US)
  Receive Date: 20210501
  Receipt Date: 20210521
  Transmission Date: 20210717
  Serious: No
  Sender: FDA-Public Use
  Company Number: US-TEVA-2021-US-1900318

PATIENT
  Age: 43 Year
  Sex: Female
  Weight: 54.43 kg

DRUGS (4)
  1. ELETRIPTAN. [Concomitant]
     Active Substance: ELETRIPTAN
     Route: 065
  2. AJOVY [Suspect]
     Active Substance: FREMANEZUMAB-VFRM
  3. ADVIL [Concomitant]
     Active Substance: IBUPROFEN
     Route: 065
  4. AJOVY [Suspect]
     Active Substance: FREMANEZUMAB-VFRM
     Indication: MIGRAINE
     Route: 065
     Dates: start: 2019

REACTIONS (3)
  - Stress at work [Unknown]
  - Smoke sensitivity [Unknown]
  - Migraine [Unknown]
